FAERS Safety Report 8486588-2 (Version None)
Quarter: 2012Q3

REPORT INFORMATION
  Report Type: 
  Country: None (occurrence: None)
  Receive Date: 20120703
  Receipt Date: 20120629
  Transmission Date: 20120928
  Serious: No
  Sender: FDA-Public Use
  Company Number: US-PFIZER INC-2012125271

PATIENT
  Sex: Male
  Weight: 72.562 kg

DRUGS (3)
  1. PRAVASTATIN [Interacting]
     Indication: PROPHYLAXIS
     Dosage: 20 MG, 1X/DAY
     Route: 048
     Dates: start: 20110101, end: 20120101
  2. CAVERJECT [Interacting]
     Dosage: 40 UG, AS NEEDED
     Route: 017
     Dates: start: 20070101
  3. CAVERJECT [Suspect]
     Indication: ERECTILE DYSFUNCTION
     Dosage: UNK

REACTIONS (4)
  - GLYCOSYLATED HAEMOGLOBIN INCREASED [None]
  - DRUG INEFFECTIVE [None]
  - DRUG INTERACTION [None]
  - DRUG LABEL CONFUSION [None]
